FAERS Safety Report 7343435-X (Version None)
Quarter: 2011Q1

REPORT INFORMATION
  Report Type: 
  Country: None (occurrence: None)
  Receive Date: 20110310
  Receipt Date: 20110223
  Transmission Date: 20110831
  Serious: Yes (Hospitalization, Other)
  Sender: FDA-Public Use
  Company Number: US-BAYER-200938601NA

PATIENT
  Sex: Female
  Weight: 79 kg

DRUGS (18)
  1. PREDNISONE [Concomitant]
     Dosage: 3 TABLETS DAILY FOR 3 DAYS THEN 2 DAILY FOR 3 DAYS THEN 1 DAILY FOR 3 DAYS
  2. YASMIN [Suspect]
     Indication: PREMENSTRUAL SYNDROME
     Route: 048
  3. PERMETHRIN [Concomitant]
     Dosage: APPLY TO AFFECTED AREA TWICE DAILY AS NEEDED
     Route: 061
  4. ACETAMINOPHEN AND OXYCODONE HCL [Concomitant]
     Indication: PAIN
  5. PREDNISONE [Concomitant]
     Dosage: 3 TABLETS DAILY FOR 3 DAYS THEN 2 DAILY FOR 3 DAYS THEN 1 DAILY FOR 3 DAYS
  6. PREDNISONE [Concomitant]
     Dosage: 3 TABLETS DAILY FOR 3 DAYS THEN 2 DAILY FOR 3 DAYS THEN 1 DAILY FOR 3 DAYS
  7. DRUGS FOR FUNCTIONAL GASTROINTEST. DISORDERS [Concomitant]
  8. CIPROFLOXACIN HYDROCHLORIDE [Concomitant]
  9. IBUPROFEN [Concomitant]
     Indication: PAIN
     Dosage: 600MG 1 TABLET EVERY 6 HOURS AS NEEDED
  10. PREDNISONE [Concomitant]
     Dosage: 3 TABLETS DAILY FOR 3 DAYS THEN 2 DAILY FOR 3 DAYS THEN 1 DAILY FOR 3 DAYS
  11. YAZ [Suspect]
     Indication: CONTRACEPTION
     Route: 048
     Dates: start: 20070525, end: 20071115
  12. YAZ [Suspect]
     Indication: PREMENSTRUAL SYNDROME
  13. MAALOX [ALUMINIUM HYDROXIDE,MAGNESIUM HYDROXIDE] [Concomitant]
  14. DRUGS FOR FUNCTIONAL GASTROINTEST. DISORDERS [Concomitant]
  15. TRIAMCINOLONE ACETONIDE [Concomitant]
     Dosage: APPLY TO AFFECTED AREA 3 TIMES DAILY AS NEEDED
     Route: 061
  16. OXYCODONE [Concomitant]
  17. PREDNISONE [Concomitant]
     Dosage: 3 TABLETS DAILY FOR 3 DAYS THEN 2 DAILY FOR 3 DAYS THEN 1 DAILY FOR 3 DAYS
  18. OXYCODONE AND ACETAMINOPHEN [Concomitant]

REACTIONS (8)
  - CHOLELITHIASIS [None]
  - NAUSEA [None]
  - ABDOMINAL PAIN [None]
  - CHEST PAIN [None]
  - BILIARY COLIC [None]
  - DYSPNOEA [None]
  - CHOLECYSTITIS CHRONIC [None]
  - DEFAECATION URGENCY [None]
